FAERS Safety Report 9838620 (Version 1)
Quarter: 2013Q4

REPORT INFORMATION
  Report Type: Spontaneous
  Country: US (occurrence: None)
  Receive Date: 20131205
  Receipt Date: 20131205
  Transmission Date: 20140711
  Serious: Yes (Hospitalization)
  Sender: FDA-Public Use
  Company Number: 163-POMAL-13110800

PATIENT
  Age: 69 Year
  Sex: Male

DRUGS (5)
  1. POMALYST (POMALIDOMIDE) (3 MILLIGRAM, CAPSULES) [Suspect]
     Indication: PLASMA CELL MYELOMA
     Dosage: 21 IN 21 D
     Route: 048
     Dates: start: 20131011
  2. ACYCLOVIR [Concomitant]
  3. METFORMIN [Concomitant]
  4. ZOLOFT [Concomitant]
  5. BLOOD [Concomitant]

REACTIONS (1)
  - Anaemia [None]
